FAERS Safety Report 7887561-5 (Version None)
Quarter: 2011Q4

REPORT INFORMATION
  Report Type: 
  Country: None (occurrence: None)
  Receive Date: 20111103
  Receipt Date: 20111025
  Transmission Date: 20120403
  Serious: No
  Sender: FDA-Public Use
  Company Number: US-BIOGENIDEC-2010BI038709

PATIENT
  Sex: Male

DRUGS (1)
  1. TYSABRI [Suspect]
     Indication: MULTIPLE SCLEROSIS
     Route: 042
     Dates: start: 20071031, end: 20101109

REACTIONS (13)
  - MUSCULAR WEAKNESS [None]
  - SPEECH DISORDER [None]
  - DROOLING [None]
  - URINARY INCONTINENCE [None]
  - DRUG EFFECT DECREASED [None]
  - DRUG INEFFECTIVE [None]
  - FATIGUE [None]
  - DRY THROAT [None]
  - ASTHENIA [None]
  - EMOTIONAL DISORDER [None]
  - POSTURE ABNORMAL [None]
  - FEELING HOT [None]
  - CHOKING [None]
